FAERS Safety Report 11394618 (Version 1)
Quarter: 2015Q3

REPORT INFORMATION
  Report Type: Spontaneous
  Country: US (occurrence: None)
  Receive Date: 20150817
  Receipt Date: 20150817
  Transmission Date: 20151125
  Serious: Yes (Disabling)
  Sender: FDA-Public Use
  Company Number: None

PATIENT
  Age: 33 Year
  Sex: Female
  Weight: 49.9 kg

DRUGS (8)
  1. TRANXENE T-TAB [Concomitant]
     Active Substance: CLORAZEPATE DIPOTASSIUM
  2. CALCIUM [Concomitant]
     Active Substance: CALCIUM
  3. FYCOMPA [Suspect]
     Active Substance: PERAMPANEL
     Indication: EPILEPSY
     Dosage: 2 MG, 4 MG, 6 MG
     Route: 048
     Dates: start: 20150716, end: 20150809
  4. KEPPRA [Concomitant]
     Active Substance: LEVETIRACETAM
  5. FYCOMPA [Suspect]
     Active Substance: PERAMPANEL
     Indication: COMPLEX PARTIAL SEIZURES
     Dosage: 2 MG, 4 MG, 6 MG
     Route: 048
     Dates: start: 20150716, end: 20150809
  6. FLOVENT [Concomitant]
     Active Substance: FLUTICASONE PROPIONATE
  7. VIMPAT [Concomitant]
     Active Substance: LACOSAMIDE
  8. MULTI-VITAMINS [Concomitant]

REACTIONS (8)
  - Speech disorder [None]
  - Abasia [None]
  - Contusion [None]
  - Urticaria [None]
  - Psychotic behaviour [None]
  - Self injurious behaviour [None]
  - Aggression [None]
  - Bite [None]

NARRATIVE: CASE EVENT DATE: 20150807
